FAERS Safety Report 7117514-6 (Version None)
Quarter: 2010Q4

REPORT INFORMATION
  Report Type: 
  Country: None (occurrence: None)
  Receive Date: 20101122
  Receipt Date: 20101112
  Transmission Date: 20110411
  Serious: Yes (Other)
  Sender: FDA-Public Use
  Company Number: US-US-EMD SERONO, INC.-7000016

PATIENT
  Sex: Female
  Weight: 47 kg

DRUGS (6)
  1. REBIF [Suspect]
     Indication: MULTIPLE SCLEROSIS
     Route: 058
     Dates: start: 20030401
  2. OTHER UNSPECIFIED MEDICATIONS [Concomitant]
  3. ALEVE (CAPLET) [Concomitant]
     Indication: PREMEDICATION
  4. GABAPENTIN [Concomitant]
     Indication: MULTIPLE SCLEROSIS
  5. IMITREX [Concomitant]
     Indication: MIGRAINE
  6. PROTONIX [Concomitant]
     Indication: ABDOMINAL DISCOMFORT

REACTIONS (8)
  - CONSTIPATION [None]
  - INJECTION SITE ERYTHEMA [None]
  - INJECTION SITE HAEMATOMA [None]
  - INJECTION SITE PRURITUS [None]
  - POST PROCEDURAL HAEMORRHAGE [None]
  - UTERINE LEIOMYOMA [None]
  - UTERINE POLYP [None]
  - UTERINE SPASM [None]
